FAERS Safety Report 5153428-9 (Version None)
Quarter: 2006Q4

REPORT INFORMATION
  Report Type: 
  Country: None (occurrence: None)
  Receive Date: 20061114
  Receipt Date: 20061030
  Transmission Date: 20070319
  Serious: Yes (Hospitalization)
  Sender: FDA-Public Use
  Company Number: 2006RL000385

PATIENT
  Age: 81 Year
  Sex: Female

DRUGS (1)
  1. PROPAFENONE HCL [Suspect]
     Indication: ATRIAL FIBRILLATION
     Dosage: 150 MG; QD; PO
     Route: 048
     Dates: start: 20061005, end: 20061015

REACTIONS (2)
  - ASTHENIA [None]
  - VERTIGO [None]
